FAERS Safety Report 20791885 (Version 1)
Quarter: 2022Q2

REPORT INFORMATION
  Report Type: Spontaneous
  Country: US (occurrence: US)
  Receive Date: 20220505
  Receipt Date: 20220505
  Transmission Date: 20220721
  Serious: Yes (Hospitalization)
  Sender: FDA-Public Use
  Company Number: US-BAUSCH-BL-2022-010631

PATIENT
  Age: 83 Year
  Sex: Female
  Weight: 58.51 kg

DRUGS (6)
  1. LATANOPROST [Suspect]
     Active Substance: LATANOPROST
     Indication: Glaucoma
     Dosage: FROM 8 TO 10 YEARS
     Route: 047
  2. PFIZER-BIONTECH COVID-19 VACCINE [Suspect]
     Active Substance: TOZINAMERAN
     Indication: Product used for unknown indication
     Route: 065
     Dates: start: 20210112
  3. PFIZER-BIONTECH COVID-19 VACCINE [Suspect]
     Active Substance: TOZINAMERAN
     Route: 065
     Dates: start: 20210202
  4. PFIZER-BIONTECH COVID-19 VACCINE [Suspect]
     Active Substance: TOZINAMERAN
     Dosage: PFIZER COVID-19 VACCINE, 3RD DOSE ADMINISTERED IN PROBABLY HER LEFT ARM
     Route: 065
     Dates: start: 20210821
  5. WELLBUTRIN [Concomitant]
     Active Substance: BUPROPION HYDROCHLORIDE
     Indication: Product used for unknown indication
  6. LISINOPRIL [Concomitant]
     Active Substance: LISINOPRIL
     Indication: Product used for unknown indication
     Route: 048

REACTIONS (9)
  - Hospitalisation [Unknown]
  - Dry eye [Unknown]
  - Agitation [Unknown]
  - Nightmare [Unknown]
  - Headache [Unknown]
  - COVID-19 [Unknown]
  - Photophobia [Unknown]
  - Adverse drug reaction [Unknown]
  - Eye disorder [Not Recovered/Not Resolved]

NARRATIVE: CASE EVENT DATE: 20220420
